FAERS Safety Report 9805951 (Version 1)
Quarter: 2014Q1

REPORT INFORMATION
  Report Type: Spontaneous
  Country: NL (occurrence: NL)
  Receive Date: 20140109
  Receipt Date: 20140109
  Transmission Date: 20141002
  Serious: Yes (Other)
  Sender: FDA-Public Use
  Company Number: NL-AMGEN-NLDSP2014000740

PATIENT
  Age: 58 Year
  Sex: Female

DRUGS (5)
  1. XGEVA [Suspect]
     Indication: PRODUCT USED FOR UNKNOWN INDICATION
     Dosage: 120 MG, Q4WK
     Route: 058
     Dates: start: 20131009
  2. FENTANYL [Concomitant]
     Dosage: 100 MUG, UNK
  3. FOLIUMZUUR [Concomitant]
     Dosage: 0.5 MG, UNK
  4. DEXAMETHASON                       /00016001/ [Concomitant]
     Dosage: 4 MG, UNK
  5. MAGNESIUM HYDROXID [Concomitant]

REACTIONS (4)
  - Peripheral arterial occlusive disease [Unknown]
  - Neuropathy peripheral [Unknown]
  - Erythema [Unknown]
  - Wound [Unknown]
